FAERS Safety Report 8321677-4 (Version None)
Quarter: 2012Q2

REPORT INFORMATION
  Report Type: 
  Country: None (occurrence: None)
  Receive Date: 20120430
  Receipt Date: 20120420
  Transmission Date: 20120825
  Serious: Yes (Hospitalization, Other)
  Sender: FDA-Public Use
  Company Number: US-SANOFI-AVENTIS-2012SA027756

PATIENT
  Sex: Male

DRUGS (2)
  1. ASPIRIN [Concomitant]
     Indication: STENT PLACEMENT
  2. PLAVIX [Suspect]
     Indication: STENT PLACEMENT
     Dates: start: 20120101

REACTIONS (5)
  - ERYTHEMA [None]
  - HYPERSENSITIVITY [None]
  - GAIT DISTURBANCE [None]
  - JOINT SWELLING [None]
  - ARTHRALGIA [None]
